FAERS Safety Report 18595583 (Version 1)
Quarter: 2020Q4

REPORT INFORMATION
  Report Type: Spontaneous
  Country: US (occurrence: US)
  Receive Date: 20201209
  Receipt Date: 20201209
  Transmission Date: 20210114
  Serious: Yes (Hospitalization)
  Sender: FDA-Public Use
  Company Number: None

PATIENT
  Age: 58 Year
  Sex: Female
  Weight: 118 kg

DRUGS (2)
  1. NO DRUG NAME [Concomitant]
  2. DEXAMETHASONE. [Suspect]
     Active Substance: DEXAMETHASONE
     Dates: end: 20201123

REACTIONS (5)
  - Product use issue [None]
  - Dehydration [None]
  - Fall [None]
  - Confusional state [None]
  - Back pain [None]

NARRATIVE: CASE EVENT DATE: 20201204
